FAERS Safety Report 8409689-3 (Version None)
Quarter: 2012Q2

REPORT INFORMATION
  Report Type: 
  Country: None (occurrence: None)
  Receive Date: 20120323
  Receipt Date: 20110922
  Transmission Date: 20120825
  Serious: Yes (Other)
  Sender: FDA-Public Use
  Company Number: 163-21880-11020908

PATIENT
  Age: 68 Year
  Sex: Male
  Weight: 80.7403 kg

DRUGS (16)
  1. REVLIMID [Suspect]
     Indication: MULTIPLE MYELOMA
     Dosage: SEE IMAGE
     Route: 048
     Dates: start: 20081201, end: 20110124
  2. REVLIMID [Suspect]
     Indication: MULTIPLE MYELOMA
     Dosage: SEE IMAGE
     Route: 048
     Dates: start: 20060802
  3. REVLIMID [Suspect]
     Indication: MULTIPLE MYELOMA
     Dosage: SEE IMAGE
     Route: 048
     Dates: start: 20110901
  4. REVLIMID [Suspect]
     Indication: MULTIPLE MYELOMA
     Dosage: SEE IMAGE
     Route: 048
     Dates: start: 20110201, end: 20110101
  5. REVLIMID [Suspect]
     Indication: MULTIPLE MYELOMA
     Dosage: SEE IMAGE
     Route: 048
     Dates: start: 20061001
  6. REVLIMID [Suspect]
     Indication: MULTIPLE MYELOMA
     Dosage: SEE IMAGE
     Route: 048
     Dates: start: 20110701, end: 20110101
  7. LOPID (GEMFIBROZIL)(UNKNOWN) [Concomitant]
  8. OXYCONTIN [Concomitant]
  9. NORVASC [Concomitant]
  10. VITAMIN D(ERGOCALCIFEROL)(UNKNOWN) [Concomitant]
  11. CYTOXAN [Concomitant]
  12. ASPIRIN [Concomitant]
  13. DEXAMETHASONE [Concomitant]
  14. LYRICA(PREGABALIN)(UNKNOWN) [Concomitant]
  15. TRAZODONE HCL [Concomitant]
  16. LIPITOR [Concomitant]

REACTIONS (1)
  - IMMUNOGLOBULINS INCREASED [None]
